FAERS Safety Report 9494285 (Version 1)
Quarter: 2013Q3

REPORT INFORMATION
  Report Type: Spontaneous
  Country: US (occurrence: None)
  Receive Date: 20130828
  Receipt Date: 20130828
  Transmission Date: 20140515
  Serious: Yes (Disabling, Other)
  Sender: FDA-Public Use
  Company Number: 2013P1018628

PATIENT
  Age: 66 Year
  Sex: Female

DRUGS (6)
  1. METRONIDAZOLE [Suspect]
     Indication: CLOSTRIDIUM DIFFICILE INFECTION
  2. ASPIRIN [Concomitant]
  3. ANTI-HYPERTENSIVES [Concomitant]
  4. SIMVASTATIN [Concomitant]
  5. ALBUTEROL [Concomitant]
  6. IPRATROPIUM [Concomitant]

REACTIONS (2)
  - Parkinsonism [None]
  - Leukoencephalopathy [None]
